FAERS Safety Report 4455779-X (Version None)
Quarter: 2004Q3

REPORT INFORMATION
  Report Type: 
  Country: None (occurrence: None)
  Receive Date: 20040920
  Receipt Date: 20040908
  Transmission Date: 20050211
  Serious: Yes (Hospitalization)
  Sender: FDA-Public Use
  Company Number: 2004055275

PATIENT
  Age: 87 Year
  Sex: Male

DRUGS (3)
  1. BENADRYL [Suspect]
     Indication: HYPERSENSITIVITY
     Dosage: 2 TABS 2X ON 6/5/04 + 1 TAB ON 06/06/04, ORAL
     Route: 048
     Dates: start: 20040605, end: 20040606
  2. ATORVASTATIN (ATORVASTATIN) [Concomitant]
  3. RAMIPRIL [Concomitant]

REACTIONS (7)
  - CAROTID ARTERY OCCLUSION [None]
  - CATHETER RELATED INFECTION [None]
  - CHILLS [None]
  - PAIN [None]
  - PROSTATIC DISORDER [None]
  - TRANSIENT ISCHAEMIC ATTACK [None]
  - URINARY RETENTION [None]
